FAERS Safety Report 21995479 (Version 1)
Quarter: 2023Q1

REPORT INFORMATION
  Report Type: Spontaneous
  Country: US (occurrence: US)
  Receive Date: 20230215
  Receipt Date: 20230215
  Transmission Date: 20230418
  Serious: No
  Sender: FDA-Public Use
  Company Number: US-SA-SAC20230214000101

PATIENT
  Sex: Female

DRUGS (4)
  1. DUPIXENT [Suspect]
     Active Substance: DUPILUMAB
     Indication: Dermatitis atopic
     Dosage: 200 MG/1.14ML,QOW
     Route: 058
     Dates: start: 20200625
  2. EUCRISA [Concomitant]
     Active Substance: CRISABOROLE
  3. PREDNISONE [Concomitant]
     Active Substance: PREDNISONE
  4. HYDROXYZINE HYDROCHLORIDE [Concomitant]
     Active Substance: HYDROXYZINE HYDROCHLORIDE

REACTIONS (3)
  - Impaired quality of life [Unknown]
  - Dermatitis atopic [Unknown]
  - Drug ineffective [Unknown]
